FAERS Safety Report 7392785-X (Version None)
Quarter: 2011Q1

REPORT INFORMATION
  Report Type: 
  Country: None (occurrence: None)
  Receive Date: 20110330
  Receipt Date: 20110330
  Transmission Date: 20110831
  Serious: Yes (Other)
  Sender: FDA-Public Use
  Company Number: None

PATIENT
  Sex: Female

DRUGS (5)
  1. METOPROLOL [Concomitant]
  2. ANASTROZOLE [Suspect]
     Indication: BREAST CANCER STAGE I
     Dosage: 1 TABLET DAILY PO
     Route: 048
     Dates: start: 20101001, end: 20110302
  3. ANASTROZOLE [Suspect]
     Indication: OESTROGEN RECEPTOR ASSAY POSITIVE
     Dosage: 1 TABLET DAILY PO
     Route: 048
     Dates: start: 20101001, end: 20110302
  4. HYDROCHLOROTHIAZIDE [Concomitant]
  5. SYNTHROID [Concomitant]

REACTIONS (15)
  - FATIGUE [None]
  - HYPOAESTHESIA [None]
  - ANXIETY [None]
  - SLEEP DISORDER [None]
  - NAIL DISORDER [None]
  - HOT FLUSH [None]
  - SKIN EXFOLIATION [None]
  - PARAESTHESIA [None]
  - GASTROINTESTINAL DISORDER [None]
  - DECREASED APPETITE [None]
  - ALOPECIA [None]
  - DIARRHOEA [None]
  - MEMORY IMPAIRMENT [None]
  - PAIN [None]
  - GASTROOESOPHAGEAL REFLUX DISEASE [None]
